FAERS Safety Report 5053870-0 (Version None)
Quarter: 2006Q3

REPORT INFORMATION
  Report Type: 
  Country: None (occurrence: None)
  Receive Date: 20060712
  Receipt Date: 20060622
  Transmission Date: 20061208
  Serious: Yes (Death, Hospitalization)
  Sender: FDA-Public Use
  Company Number: EWC980400286

PATIENT
  Age: 39 Year
  Sex: Female
  Weight: 55 kg

DRUGS (10)
  1. PROZAC [Suspect]
     Indication: DEPRESSION
     Dosage: 20 MG, DAILY (1/D), ORAL; SEE IMAGE
     Route: 048
     Dates: start: 19970101, end: 19970619
  2. PROZAC [Suspect]
     Indication: DEPRESSION
     Dosage: 20 MG, DAILY (1/D), ORAL; SEE IMAGE
     Route: 048
     Dates: start: 19970609, end: 19970619
  3. CLONAZEPAM [Concomitant]
  4. DIPIPERON (PIPAMPERONE) [Concomitant]
  5. VALPROATE SODIUM [Concomitant]
  6. MEPRONIZINE [Concomitant]
  7. THERALENE (ALIMEMAZINE TARTRATE) [Concomitant]
  8. PHENERGAN (PROMETHAZINE HYDROCHLORIDE) [Concomitant]
  9. ANAFRANIL [Concomitant]
  10. AMITRIPTYLINE HCL [Concomitant]

REACTIONS (7)
  - AGITATION [None]
  - CONFUSIONAL STATE [None]
  - DRUG DEPENDENCE [None]
  - MULTIPLE DRUG OVERDOSE INTENTIONAL [None]
  - SUICIDAL IDEATION [None]
  - SUICIDE ATTEMPT [None]
  - THERAPY NON-RESPONDER [None]
